FAERS Safety Report 7679978-9 (Version None)
Quarter: 2011Q3

REPORT INFORMATION
  Report Type: 
  Country: None (occurrence: None)
  Receive Date: 20110805
  Receipt Date: 20110727
  Transmission Date: 20111222
  Serious: Yes (Hospitalization, Other)
  Sender: FDA-Public Use
  Company Number: 2009SP023508

PATIENT
  Age: 34 Year
  Sex: Female

DRUGS (1)
  1. NUVARING [Suspect]
     Indication: CONTRACEPTION
     Dates: start: 20030101, end: 20061208

REACTIONS (41)
  - PULMONARY EMBOLISM [None]
  - DEPRESSION [None]
  - MUSCLE SPASMS [None]
  - PAIN IN EXTREMITY [None]
  - INTERVERTEBRAL DISC PROTRUSION [None]
  - SPINAL COLUMN STENOSIS [None]
  - CHEST DISCOMFORT [None]
  - MIGRAINE [None]
  - ROTATOR CUFF SYNDROME [None]
  - IMPAIRED WORK ABILITY [None]
  - CHEST PAIN [None]
  - LIGAMENT SPRAIN [None]
  - SARCOIDOSIS [None]
  - COUGH [None]
  - MUSCULAR WEAKNESS [None]
  - MEDICAL DEVICE COMPLICATION [None]
  - TYPE 2 DIABETES MELLITUS [None]
  - SOMATOFORM DISORDER [None]
  - DYSPNOEA [None]
  - FATIGUE [None]
  - BURSITIS [None]
  - INTERVERTEBRAL DISC DEGENERATION [None]
  - NAUSEA [None]
  - MALAISE [None]
  - CARTILAGE INJURY [None]
  - OEDEMA PERIPHERAL [None]
  - BACK PAIN [None]
  - FIBROMATOSIS [None]
  - NARCOLEPSY [None]
  - INTERNATIONAL NORMALISED RATIO DECREASED [None]
  - TENOSYNOVITIS STENOSANS [None]
  - ABDOMINAL HERNIA [None]
  - POSTOPERATIVE ILEUS [None]
  - THROMBOSIS [None]
  - MUSCLE STRAIN [None]
  - CONDITION AGGRAVATED [None]
  - SCIATICA [None]
  - MACULAR DEGENERATION [None]
  - HYPERTENSION [None]
  - MUSCULOSKELETAL PAIN [None]
  - VENOUS OCCLUSION [None]
